FAERS Safety Report 11506087 (Version 1)
Quarter: 2015Q3

REPORT INFORMATION
  Report Type: Spontaneous
  Country: US (occurrence: US)
  Receive Date: 20150915
  Receipt Date: 20150915
  Transmission Date: 20151125
  Serious: No
  Sender: FDA-Public Use
  Company Number: US-ROCHE-802797

PATIENT
  Sex: Male

DRUGS (3)
  1. TELAPREVIR [Concomitant]
     Active Substance: TELAPREVIR
     Indication: CHRONIC HEPATITIS C
     Dosage: 750 MG 3 TIMES A DAY FOR INITIAL 12 WEEK LENGTH OF THERAPY
     Route: 065
  2. PEGASYS [Suspect]
     Active Substance: PEGINTERFERON ALFA-2A
     Indication: CHRONIC HEPATITIS C
     Route: 058
  3. RIBASPHERE [Suspect]
     Active Substance: RIBAVIRIN
     Indication: CHRONIC HEPATITIS C
     Dosage: 1200 MG/DAY DIVIDED DOSES
     Route: 048

REACTIONS (2)
  - Heart rate increased [Unknown]
  - Hypertension [Unknown]
